FAERS Safety Report 24213565 (Version 1)
Quarter: 2024Q3

REPORT INFORMATION
  Report Type: Spontaneous
  Country: BE (occurrence: BE)
  Receive Date: 20240815
  Receipt Date: 20240815
  Transmission Date: 20241017
  Serious: Yes (Life-Threatening, Other)
  Sender: B BRAUN
  Company Number: BE-B.Braun Medical Inc.-2160504

PATIENT
  Sex: Male
  Weight: 90 kg

DRUGS (8)
  1. ACETAMINOPHEN [Suspect]
     Active Substance: ACETAMINOPHEN
     Indication: Local anaesthesia
     Dates: start: 20240416
  2. ROPIVACAINE. [Suspect]
     Active Substance: ROPIVACAINE HYDROCHLORIDE
  3. LIDOCAINE [Suspect]
     Active Substance: LIDOCAINE
  4. CLONIDINE [Suspect]
     Active Substance: CLONIDINE
  5. CEFAZOLIN [Suspect]
     Active Substance: CEFAZOLIN
  6. VOLTAREN [Suspect]
     Active Substance: DICLOFENAC SODIUM
  7. ROCURONIUM [Suspect]
     Active Substance: ROCURONIUM BROMIDE
  8. PROPOFOL [Suspect]
     Active Substance: PROPOFOL

REACTIONS (4)
  - Hypoxia [Unknown]
  - Hypotension [Unknown]
  - Anaphylactic reaction [Unknown]
  - Erythema [Unknown]
